FAERS Safety Report 7604578-6 (Version None)
Quarter: 2011Q3

REPORT INFORMATION
  Report Type: 
  Country: None (occurrence: None)
  Receive Date: 20110712
  Receipt Date: 20110708
  Transmission Date: 20111222
  Serious: Yes (Life-Threatening, Hospitalization)
  Sender: FDA-Public Use
  Company Number: GB-PFIZER INC-2011141847

PATIENT
  Age: 53 Year
  Sex: Female

DRUGS (6)
  1. IBUPROFEN [Suspect]
     Indication: PAIN
     Dosage: 400 MG, 3X/DAY
     Route: 048
     Dates: start: 20110603, end: 20110606
  2. DOXAZOSIN [Concomitant]
     Dosage: UNK
     Dates: start: 20110527
  3. PARACETAMOL [Concomitant]
  4. LOSARTAN [Concomitant]
  5. VANCOMYCIN [Suspect]
     Indication: CELLULITIS
     Dosage: 1 G, 2X/DAY
     Route: 042
     Dates: start: 20110529, end: 20110606
  6. ENOXAPARIN [Concomitant]
     Dosage: UNK
     Dates: start: 20110527

REACTIONS (4)
  - BLOOD CREATININE INCREASED [None]
  - RENAL IMPAIRMENT [None]
  - GLOMERULAR FILTRATION RATE DECREASED [None]
  - RENAL FAILURE ACUTE [None]
